FAERS Safety Report 8887392 (Version 1)
Quarter: 2012Q4

REPORT INFORMATION
  Report Type: 
  Country: US (occurrence: US)
  Receive Date: 20121101
  Receipt Date: 20121101
  Transmission Date: 20130627
  Serious: Yes (Death)
  Sender: FDA-Public Use
  Company Number: CHPA2012US022643

PATIENT
  Age: 62 Year
  Sex: Female

DRUGS (1)
  1. 4 WAY FAST ACTING NASAL SPRAY [Suspect]
     Indication: SINUS DISORDER
     Dosage: 2 DF PER NOSTRIL, QD or QOD
     Route: 045
     Dates: end: 20120312

REACTIONS (3)
  - Death [Fatal]
  - Off label use [Unknown]
  - Incorrect drug administration duration [Unknown]
